FAERS Safety Report 8800735 (Version 1)
Quarter: 2012Q4

REPORT INFORMATION
  Report Type: 
  Country: US (occurrence: US)
  Receive Date: 20120921
  Receipt Date: 20120921
  Transmission Date: 20130627
  Serious: Yes (Other)
  Sender: FDA-Public Use
  Company Number: US-009507513-2012SP010738

PATIENT
  Age: 28 Year
  Sex: Female
  Weight: 103.42 kg

DRUGS (1)
  1. SAPHRIS [Suspect]
     Indication: BIPOLAR DISORDER
     Dosage: ONE SINGLE PILL AT 7:00 PM.
     Route: 060
     Dates: start: 20111201

REACTIONS (4)
  - Insomnia [Unknown]
  - Muscle spasms [Recovered/Resolved]
  - Dysphagia [Unknown]
  - Inappropriate schedule of drug administration [Unknown]
